FAERS Safety Report 8182505-3 (Version None)
Quarter: 2012Q1

REPORT INFORMATION
  Report Type: 
  Country: None (occurrence: None)
  Receive Date: 20120305
  Receipt Date: 20120222
  Transmission Date: 20120608
  Serious: Yes (Hospitalization, Other)
  Sender: FDA-Public Use
  Company Number: US-BIOGENIDEC-2012BI007146

PATIENT
  Sex: Female

DRUGS (5)
  1. ZOLOFT [Concomitant]
     Route: 048
  2. VITAMIN D [Concomitant]
     Route: 048
  3. FERROUS SULFATE TAB [Concomitant]
  4. MULTI-VITAMINS [Concomitant]
  5. AVONEX [Suspect]
     Indication: MULTIPLE SCLEROSIS
     Route: 030
     Dates: start: 20030626, end: 20050801

REACTIONS (2)
  - CHOLECYSTECTOMY [None]
  - ATRIAL TACHYCARDIA [None]
